FAERS Safety Report 25239567 (Version 1)
Quarter: 2025Q2

REPORT INFORMATION
  Report Type: Spontaneous
  Country: US (occurrence: US)
  Receive Date: 20250425
  Receipt Date: 20250425
  Transmission Date: 20250716
  Serious: Yes (Other)
  Sender: ROCHE
  Company Number: US-ROCHE-10000260607

PATIENT
  Age: 76 Year
  Sex: Female
  Weight: 56.2 kg

DRUGS (23)
  1. CELLCEPT [Suspect]
     Active Substance: MYCOPHENOLATE MOFETIL
     Indication: Product used for unknown indication
     Route: 065
     Dates: start: 2024
  2. TYVASO [Suspect]
     Active Substance: TREPROSTINIL
     Indication: Pulmonary arterial hypertension
     Dosage: INHALATION
     Route: 055
  3. TYVASO [Suspect]
     Active Substance: TREPROSTINIL
     Indication: Pulmonary arterial hypertension
     Route: 055
     Dates: start: 20220215
  4. TYLENOL [Suspect]
     Active Substance: ACETAMINOPHEN
     Indication: Product used for unknown indication
     Route: 065
  5. SPIRIVA [Concomitant]
     Active Substance: TIOTROPIUM BROMIDE MONOHYDRATE
  6. NIACIN [Concomitant]
     Active Substance: NIACIN
  7. AMOXICILLIN [Concomitant]
     Active Substance: AMOXICILLIN
  8. TAMSULOSIN HYDROCHLORIDE [Concomitant]
     Active Substance: TAMSULOSIN HYDROCHLORIDE
  9. MOMETASONE FUROATE [Concomitant]
     Active Substance: MOMETASONE FUROATE
  10. LOSARTAN POTASSIUM [Concomitant]
     Active Substance: LOSARTAN POTASSIUM
  11. COENZYME Q10 [Concomitant]
     Active Substance: DIETARY SUPPLEMENT\UBIDECARENONE
  12. ATORVASTATIN CALCIUM [Concomitant]
     Active Substance: ATORVASTATIN CALCIUM
  13. VITAMIN D3 [Concomitant]
     Active Substance: CHOLECALCIFEROL
  14. MAGNESIUM GLUCONATE [Concomitant]
     Active Substance: MAGNESIUM GLUCONATE
  15. NITROGLYCERIN [Concomitant]
     Active Substance: NITROGLYCERIN
  16. METOPROLOL SUCCINATE [Concomitant]
     Active Substance: METOPROLOL SUCCINATE
  17. OMEGA-3 ACIDS [Concomitant]
     Active Substance: OMEGA-3 FATTY ACIDS
  18. FOLIC ACID [Concomitant]
     Active Substance: FOLIC ACID
  19. PREVIDENT [Concomitant]
     Active Substance: SODIUM FLUORIDE
  20. ASPIRIN [Concomitant]
     Active Substance: ASPIRIN
  21. OXYGEN [Concomitant]
     Active Substance: OXYGEN
  22. ADVAIR HFA [Concomitant]
     Active Substance: FLUTICASONE PROPIONATE\SALMETEROL XINAFOATE
  23. Garlic (Allium sativum oil) [Concomitant]

REACTIONS (21)
  - Liver injury [Unknown]
  - Connective tissue disorder [Unknown]
  - Pulmonary fibrosis [Unknown]
  - Cough [Unknown]
  - Inguinal hernia [Unknown]
  - Immunisation reaction [Unknown]
  - Headache [Unknown]
  - Neck pain [Unknown]
  - Poor quality sleep [Unknown]
  - Joint swelling [Unknown]
  - Anxiety [Unknown]
  - Productive cough [Unknown]
  - Upper-airway cough syndrome [Unknown]
  - Dyspnoea [Unknown]
  - Head discomfort [Unknown]
  - Brain fog [Unknown]
  - Asthenia [Unknown]
  - Anaemia [Unknown]
  - Decreased appetite [Unknown]
  - Weight decreased [Unknown]
  - Malaise [Unknown]

NARRATIVE: CASE EVENT DATE: 20240101
